FAERS Safety Report 10008914 (Version 1)
Quarter: 2014Q1

REPORT INFORMATION
  Report Type: Spontaneous
  Country: US (occurrence: US)
  Receive Date: 20140313
  Receipt Date: 20140313
  Transmission Date: 20141002
  Serious: No
  Sender: FDA-Public Use
  Company Number: US-INCYTE CORPORATION-2012IN000959

PATIENT
  Age: 86 Year
  Sex: Male

DRUGS (13)
  1. JAKAFI [Suspect]
     Indication: MYELOFIBROSIS
     Dosage: 10 MG, QD
     Route: 048
  2. PREDNISONE [Concomitant]
  3. FUROSEMIDE [Concomitant]
  4. VITAMIN B12 [Concomitant]
  5. VITAMIN C [Concomitant]
  6. LEVOXYL [Concomitant]
  7. DEPAKOTE [Concomitant]
  8. ASPIRIN [Concomitant]
     Dosage: 81 MG, UNK
  9. PANTOPRAZOLE [Concomitant]
  10. METOPROLOL [Concomitant]
  11. PLAVIX [Concomitant]
  12. ALLOPURINOL [Concomitant]
  13. LIPITOR [Concomitant]

REACTIONS (2)
  - Fatigue [Unknown]
  - Anaemia [Unknown]
